FAERS Safety Report 7911247-1 (Version None)
Quarter: 2011Q4

REPORT INFORMATION
  Report Type: 
  Country: None (occurrence: None)
  Receive Date: 20111114
  Receipt Date: 20111103
  Transmission Date: 20120403
  Serious: Yes (Other)
  Sender: FDA-Public Use
  Company Number: US-GENZYME-MOZO-1000592

PATIENT
  Sex: Male

DRUGS (4)
  1. VIDAZA [Concomitant]
     Indication: MYELODYSPLASTIC SYNDROME
     Dosage: 75 MG/M2, QD
     Route: 058
  2. NEUPOGEN [Concomitant]
     Indication: MYELODYSPLASTIC SYNDROME
     Dosage: 10 MCG/KG, QD
     Route: 058
  3. MOZOBIL [Suspect]
     Indication: MYELODYSPLASTIC SYNDROME
  4. MOZOBIL [Suspect]
     Indication: HAEMATOPOIETIC STEM CELL MOBILISATION
     Dosage: 440 MCG/KG, QD
     Route: 065

REACTIONS (2)
  - ABDOMINAL PAIN [None]
  - HALLUCINATION, AUDITORY [None]
